FAERS Safety Report 7288215-9 (Version None)
Quarter: 2011Q1

REPORT INFORMATION
  Report Type: 
  Country: None (occurrence: None)
  Receive Date: 20110211
  Receipt Date: 20110202
  Transmission Date: 20110831
  Serious: Yes (Other)
  Sender: FDA-Public Use
  Company Number: JP-ROCHE-749475

PATIENT
  Sex: Female
  Weight: 56 kg

DRUGS (7)
  1. FURTULON [Suspect]
     Indication: BREAST CANCER
     Dosage: NOTE: DOSAGE IS UNCERTAIN
     Route: 048
     Dates: start: 20090403
  2. HERCEPTIN [Suspect]
     Indication: BREAST CANCER
     Route: 041
     Dates: start: 20080917, end: 20080925
  3. ASPIRIN [Concomitant]
     Route: 048
     Dates: start: 20090401, end: 20090701
  4. ENDOXAN [Concomitant]
     Route: 065
     Dates: start: 20090401, end: 20090801
  5. HERCEPTIN [Suspect]
     Route: 041
     Dates: start: 20080926
  6. PACLITAXEL [Concomitant]
     Route: 041
     Dates: start: 20080901, end: 20090301
  7. HYSRON [Concomitant]
     Route: 048
     Dates: start: 20090401, end: 20090401

REACTIONS (1)
  - PNEUMOCYSTIS JIROVECI PNEUMONIA [None]
